FAERS Safety Report 13307217 (Version 3)
Quarter: 2017Q2

REPORT INFORMATION
  Report Type: Report from Study
  Country: US (occurrence: US)
  Receive Date: 20170308
  Receipt Date: 20170424
  Transmission Date: 20170830
  Serious: Yes (Life-Threatening, Other)
  Sender: FDA-Public Use
  Company Number: US-SA-2017SA036729

PATIENT
  Age: 28 Year
  Sex: Male

DRUGS (3)
  1. MUCINEX [Concomitant]
     Active Substance: GUAIFENESIN
     Indication: ACUTE RESPIRATORY DISTRESS SYNDROME
  2. LEMTRADA [Suspect]
     Active Substance: ALEMTUZUMAB
     Indication: MULTIPLE SCLEROSIS
     Route: 041
     Dates: start: 20170227, end: 20170301
  3. LEMTRADA [Suspect]
     Active Substance: ALEMTUZUMAB
     Indication: MULTIPLE SCLEROSIS
     Route: 041
     Dates: start: 20170322, end: 20170323

REACTIONS (6)
  - Chest pain [Not Recovered/Not Resolved]
  - Oesophageal pain [Unknown]
  - Haemoptysis [Unknown]
  - Chest X-ray abnormal [Unknown]
  - Pneumonia [Unknown]
  - Dyspnoea [Not Recovered/Not Resolved]

NARRATIVE: CASE EVENT DATE: 2017
